FAERS Safety Report 9637337 (Version 3)
Quarter: 2013Q4

REPORT INFORMATION
  Report Type: Report from Study
  Country: AR (occurrence: AR)
  Receive Date: 20131022
  Receipt Date: 20131027
  Transmission Date: 20140711
  Serious: Yes (Death)
  Sender: FDA-Public Use
  Company Number: PHHY2013AR118440

PATIENT
  Sex: Male

DRUGS (2)
  1. EXELON PATCH [Suspect]
     Indication: DEMENTIA
     Dosage: 4.6 MG, DAILY (PATCH 5)
     Route: 062
     Dates: start: 2008
  2. EXELON PATCH [Suspect]
     Dosage: 9.5 MG, (PATCH 10)
     Route: 062
     Dates: start: 2008

REACTIONS (1)
  - Cardiac arrest [Fatal]
